FAERS Safety Report 19018630 (Version 3)
Quarter: 2021Q3

REPORT INFORMATION
  Report Type: Spontaneous
  Country: US (occurrence: US)
  Receive Date: 20210317
  Receipt Date: 20210712
  Transmission Date: 20211014
  Serious: Yes (Other)
  Sender: FDA-Public Use
  Company Number: US-JNJFOC-20210319900

PATIENT
  Age: 10 Year
  Sex: Male
  Weight: 92 kg

DRUGS (3)
  1. HALDOL [Suspect]
     Active Substance: HALOPERIDOL
     Indication: AGITATION
     Dosage: IN TOTAL
     Route: 030
  2. HYDROXYZINE [Concomitant]
     Active Substance: HYDROXYZINE HYDROCHLORIDE
     Indication: AGGRESSION
  3. HYDROXYZINE [Concomitant]
     Active Substance: HYDROXYZINE HYDROCHLORIDE
     Indication: AGITATION
     Dosage: ; AS REQUIRED
     Route: 048

REACTIONS (4)
  - Catatonia [Recovered/Resolved]
  - Sedation [Recovered/Resolved]
  - Off label use [Unknown]
  - Product use issue [Unknown]
